FAERS Safety Report 6181120-0 (Version None)
Quarter: 2009Q2

REPORT INFORMATION
  Report Type: 
  Country: None (occurrence: None)
  Receive Date: 20090506
  Receipt Date: 20090427
  Transmission Date: 20091009
  Serious: Yes (Other)
  Sender: FDA-Public Use
  Company Number: PHHY2009CA04884

PATIENT
  Sex: Female

DRUGS (4)
  1. DIOVAN HCT [Suspect]
     Indication: HYPERTENSION
     Dosage: 160/25 MG ONCE DAILY
     Route: 048
     Dates: start: 20080512
  2. ELTROXIN ^GLAXO^ [Concomitant]
     Dosage: 0.05 MG, QD
  3. NORVASC [Concomitant]
     Dosage: 5 MG, QD
  4. ATIVAN [Concomitant]
     Indication: SLEEP DISORDER
     Dosage: 0.5 MG PRN

REACTIONS (3)
  - HEADACHE [None]
  - HYPOAESTHESIA [None]
  - TRANSIENT ISCHAEMIC ATTACK [None]
